FAERS Safety Report 12064061 (Version 1)
Quarter: 2016Q1

REPORT INFORMATION
  Report Type: Report from Study
  Country: US (occurrence: US)
  Receive Date: 20160210
  Receipt Date: 20160210
  Transmission Date: 20160526
  Serious: No
  Sender: FDA-Public Use
  Company Number: US-ABBVIE-15P-163-1515628-00

PATIENT
  Age: 45 Year
  Sex: Female

DRUGS (1)
  1. HUMIRA [Suspect]
     Active Substance: ADALIMUMAB
     Indication: RHEUMATOID ARTHRITIS
     Route: 058
     Dates: start: 20151020

REACTIONS (8)
  - Sputum discoloured [Recovering/Resolving]
  - Depression [Unknown]
  - Arthralgia [Unknown]
  - Upper respiratory tract infection [Recovering/Resolving]
  - Musculoskeletal stiffness [Unknown]
  - Joint stiffness [Unknown]
  - Activities of daily living impaired [Unknown]
  - Injection site pain [Unknown]

NARRATIVE: CASE EVENT DATE: 2015
